FAERS Safety Report 15739261 (Version 3)
Quarter: 2019Q1

REPORT INFORMATION
  Report Type: Spontaneous
  Country: BE (occurrence: BE)
  Receive Date: 20181219
  Receipt Date: 20190212
  Transmission Date: 20190417
  Serious: Yes (Other)
  Sender: FDA-Public Use
  Company Number: BE-BAYER-2018-220043

PATIENT
  Sex: Male

DRUGS (18)
  1. XOFIGO [Suspect]
     Active Substance: RADIUM RA-223 DICHLORIDE
     Indication: PROSTATE CANCER
     Dosage: UNK
     Dates: start: 20180907, end: 20180907
  2. XOFIGO [Suspect]
     Active Substance: RADIUM RA-223 DICHLORIDE
     Indication: METASTASES TO BONE
     Dosage: UNK
     Dates: start: 20181031, end: 20181031
  3. DECAPEPTYL (ACETATE) [Concomitant]
     Active Substance: TRIPTORELIN ACETATE
     Dosage: 11.25 MG, Q3MON
     Dates: start: 20180724
  4. XGEVA [Concomitant]
     Active Substance: DENOSUMAB
     Dosage: 120 MG
     Route: 058
     Dates: start: 20180724
  5. DEXAMETHASONE. [Concomitant]
     Active Substance: DEXAMETHASONE
     Dosage: 0.50 MG 1 GEL / DAY
     Route: 058
  6. BRUFEN [IBUPROFEN] [Concomitant]
     Active Substance: IBUPROFEN
     Dosage: 600 MG FORTE {10 CO TAKEN PAST MONTH
  7. DEXAMETHASONE. [Concomitant]
     Active Substance: DEXAMETHASONE
     Dosage: 0.75 MG 1 CO / DAY
     Route: 058
  8. DAFALGAN FORTE [Concomitant]
     Dosage: 1000 MG 3 CO TAKEN / 3 MONTH TIME
  9. XGEVA [Concomitant]
     Active Substance: DENOSUMAB
     Dosage: 120 MG
     Route: 058
     Dates: start: 20180921
  10. XOFIGO [Suspect]
     Active Substance: RADIUM RA-223 DICHLORIDE
     Indication: METASTASES TO BONE
     Dosage: UNK
     Dates: start: 20180810, end: 20180810
  11. XGEVA [Concomitant]
     Active Substance: DENOSUMAB
     Dosage: 120 MG
     Route: 058
     Dates: start: 20181019
  12. STEOVIT FORTE [Concomitant]
     Dosage: 1000/800 MG 1 EFFERVESCENT TABLET / DAY
  13. BRUFEN [IBUPROFEN] [Concomitant]
     Active Substance: IBUPROFEN
     Dosage: RETARD 800 MG 2 CO / DAY
  14. BRUFEN [IBUPROFEN] [Concomitant]
     Active Substance: IBUPROFEN
     Dosage: 600 MG FORTE OR 400 MG TO 24 CO TAKEN PAST MONTH
  15. PANTOMED [PANTOPRAZOLE SODIUM SESQUIHYDRATE] [Concomitant]
     Dosage: PREVENTIVE 20 MG 1 CO / DAY (ONLY WHEN TAKING BRUFEN)
  16. XOFIGO [Suspect]
     Active Substance: RADIUM RA-223 DICHLORIDE
     Indication: METASTASES TO BONE
     Dosage: UNK
     Dates: start: 20181005, end: 20181005
  17. DECAPEPTYL (ACETATE) [Concomitant]
     Active Substance: TRIPTORELIN ACETATE
     Dosage: 11.25 MG, Q3MON
     Dates: start: 20180921
  18. DEXAMETHASONE. [Concomitant]
     Active Substance: DEXAMETHASONE
     Dosage: 0.5 MG, QD
     Route: 058

REACTIONS (9)
  - Prostate cancer [None]
  - Dyspnoea [None]
  - Fatigue [None]
  - Discomfort [None]
  - Gait disturbance [None]
  - Heart rate increased [None]
  - Back pain [Recovering/Resolving]
  - Pain [None]
  - Lymphangiosis carcinomatosa [None]

NARRATIVE: CASE EVENT DATE: 20181023
